FAERS Safety Report 18932569 (Version 1)
Quarter: 2021Q1

REPORT INFORMATION
  Report Type: Other
  Country: PL (occurrence: PL)
  Receive Date: 20210224
  Receipt Date: 20210224
  Transmission Date: 20210420
  Serious: Yes (Hospitalization)
  Sender: FDA-Public Use
  Company Number: PL-CELLTRION INC.-2021PL002125

PATIENT

DRUGS (4)
  1. VIGANTOLETTEN [Concomitant]
     Active Substance: CHOLECALCIFEROL
  2. REMSIMA [Suspect]
     Active Substance: INFLIXIMAB
     Indication: CROHN^S DISEASE
     Dosage: TENTH DOSE OF THE DRUG
     Route: 041
     Dates: start: 20191106, end: 20191107
  3. REMSIMA [Suspect]
     Active Substance: INFLIXIMAB
     Dosage: TENTH DOSE OF THE DRUG
     Route: 041
     Dates: start: 20191106, end: 20191107
  4. ASAMAX [Concomitant]
     Active Substance: MESALAMINE
     Dosage: TAKEN EVERY 4 WEEKS
     Dates: start: 20191010

REACTIONS (2)
  - Pancreatitis acute [Recovering/Resolving]
  - Overdose [Unknown]

NARRATIVE: CASE EVENT DATE: 20200103
